FAERS Safety Report 4541116-9 (Version None)
Quarter: 2004Q4

REPORT INFORMATION
  Report Type: 
  Country: None (occurrence: None)
  Receive Date: 20041229
  Receipt Date: 20041221
  Transmission Date: 20050328
  Serious: Yes (Other)
  Sender: FDA-Public Use
  Company Number: US-BRISTOL-MYERS SQUIBB COMPANY-12802724

PATIENT

DRUGS (2)
  1. REYATAZ [Suspect]
  2. GEMFIBROZIL [Suspect]

REACTIONS (1)
  - RHABDOMYOLYSIS [None]
